FAERS Safety Report 12126655 (Version 1)
Quarter: 2016Q1

REPORT INFORMATION
  Report Type: Spontaneous
  Country: CA (occurrence: CA)
  Receive Date: 20160229
  Receipt Date: 20160229
  Transmission Date: 20160526
  Serious: Yes (Other)
  Sender: FDA-Public Use
  Company Number: CA-GLAXOSMITHKLINE-A1061762A

PATIENT
  Sex: Female

DRUGS (1)
  1. BENLYSTA [Suspect]
     Active Substance: BELIMUMAB
     Indication: SYSTEMIC LUPUS ERYTHEMATOSUS
     Dosage: 625 MG, WEEKS 0,2,4 THEN Q4W
     Route: 042

REACTIONS (7)
  - Pericardial effusion [Unknown]
  - Disease recurrence [Unknown]
  - Nasopharyngitis [Unknown]
  - Cough [Unknown]
  - Malaise [Unknown]
  - Pneumonia [Unknown]
  - Lung disorder [Unknown]
